FAERS Safety Report 6295974-0 (Version None)
Quarter: 2009Q3

REPORT INFORMATION
  Report Type: 
  Country: None (occurrence: None)
  Receive Date: 20090803
  Receipt Date: 20090803
  Transmission Date: 20100115
  Serious: Yes (Hospitalization)
  Sender: FDA-Public Use
  Company Number: None

PATIENT
  Age: 81 Year
  Sex: Male
  Weight: 80 kg

DRUGS (2)
  1. DOCETAXEL [Suspect]
     Indication: NON-SMALL CELL LUNG CANCER
     Dosage: ONCE EVERY 3 WEEKS
     Dates: start: 20090603
  2. RAD001 [Suspect]
     Indication: NON-SMALL CELL LUNG CANCER
     Dosage: 5MG 1-19 DAYS ONLY
     Dates: start: 20090603, end: 20090714

REACTIONS (3)
  - BLOOD PRESSURE SYSTOLIC INCREASED [None]
  - BODY TEMPERATURE DECREASED [None]
  - SMALL INTESTINAL OBSTRUCTION [None]
